FAERS Safety Report 7528677-2 (Version None)
Quarter: 2011Q2

REPORT INFORMATION
  Report Type: 
  Country: None (occurrence: None)
  Receive Date: 20110607
  Receipt Date: 20110524
  Transmission Date: 20111010
  Serious: Yes (Other)
  Sender: FDA-Public Use
  Company Number: BR-JNJFOC-20110310328

PATIENT
  Age: 67 Year
  Sex: Male

DRUGS (1)
  1. REMICADE [Suspect]
     Indication: PSORIASIS
     Route: 042
     Dates: start: 20090601

REACTIONS (6)
  - HYPOTENSION [None]
  - HYPERSENSITIVITY [None]
  - INFUSION RELATED REACTION [None]
  - TACHYCARDIA [None]
  - HYPERHIDROSIS [None]
  - TREMOR [None]
